FAERS Safety Report 17474720 (Version 1)
Quarter: 2020Q1

REPORT INFORMATION
  Report Type: Report from Study
  Country: CA (occurrence: CA)
  Receive Date: 20200228
  Receipt Date: 20200228
  Transmission Date: 20200409
  Serious: Yes (Other)
  Sender: FDA-Public Use
  Company Number: CA-JNJFOC-20190731044

PATIENT
  Age: 53 Year
  Sex: Male
  Weight: 76.5 kg

DRUGS (3)
  1. STELARA [Suspect]
     Active Substance: USTEKINUMAB
     Indication: CROHN^S DISEASE
     Dosage: STRENGTH = 130 MG
     Route: 042
     Dates: start: 20190719
  2. STELARA [Suspect]
     Active Substance: USTEKINUMAB
     Dosage: STRENGTH = 130 MG
     Route: 058
  3. CORTISONE [Concomitant]
     Active Substance: CORTISONE

REACTIONS (1)
  - Neurogenic shock [Recovered/Resolved]

NARRATIVE: CASE EVENT DATE: 20190719
